FAERS Safety Report 9914545 (Version 1)
Quarter: 2014Q1

REPORT INFORMATION
  Report Type: Spontaneous
  Country: US (occurrence: US)
  Receive Date: 20140220
  Receipt Date: 20140220
  Transmission Date: 20141002
  Serious: No
  Sender: FDA-Public Use
  Company Number: US-BAYER-2014-027112

PATIENT
  Sex: Male
  Weight: 59 kg

DRUGS (1)
  1. ALEVE CAPLET [Suspect]
     Indication: ARTHRITIS
     Dosage: 2 DF, PRN
     Route: 048
     Dates: start: 2010

REACTIONS (1)
  - Incorrect drug administration duration [None]
